FAERS Safety Report 7235304-0 (Version None)
Quarter: 2011Q1

REPORT INFORMATION
  Report Type: 
  Country: None (occurrence: None)
  Receive Date: 20110120
  Receipt Date: 20110112
  Transmission Date: 20110831
  Serious: Yes (Other)
  Sender: FDA-Public Use
  Company Number: US-JNJFOC-20110103298

PATIENT
  Sex: Female
  Weight: 86.18 kg

DRUGS (1)
  1. REMICADE [Suspect]
     Indication: RHEUMATOID ARTHRITIS
     Route: 042

REACTIONS (7)
  - CHILLS [None]
  - TREMOR [None]
  - HYPERHIDROSIS [None]
  - PYREXIA [None]
  - PARONYCHIA [None]
  - HEADACHE [None]
  - FLUSHING [None]
